FAERS Safety Report 8417058-5 (Version None)
Quarter: 2012Q2

REPORT INFORMATION
  Report Type: 
  Country: None (occurrence: None)
  Receive Date: 20120606
  Receipt Date: 20120529
  Transmission Date: 20120825
  Serious: Yes (Other)
  Sender: FDA-Public Use
  Company Number: US-BAXTER-2012BAX007206

PATIENT

DRUGS (1)
  1. VANCOMYCIN [Suspect]
     Route: 042

REACTIONS (6)
  - HALLUCINATION, VISUAL [None]
  - ANXIETY [None]
  - DISORIENTATION [None]
  - RED MAN SYNDROME [None]
  - PERIORBITAL OEDEMA [None]
  - INCORRECT DRUG ADMINISTRATION RATE [None]
